FAERS Safety Report 7739564-9 (Version None)
Quarter: 2011Q3

REPORT INFORMATION
  Report Type: 
  Country: None (occurrence: None)
  Receive Date: 20110909
  Receipt Date: 20110907
  Transmission Date: 20111222
  Serious: Yes (Other)
  Sender: FDA-Public Use
  Company Number: ES-PFIZER INC-2011209228

PATIENT
  Age: 12 Year
  Sex: Female

DRUGS (1)
  1. SOMATROPIN RDNA [Suspect]
     Dosage: 1 MG, UNK

REACTIONS (2)
  - DIPLOPIA [None]
  - HEADACHE [None]
